FAERS Safety Report 5051395-X (Version None)
Quarter: 2006Q3

REPORT INFORMATION
  Report Type: 
  Country: None (occurrence: None)
  Receive Date: 20060714
  Receipt Date: 20060619
  Transmission Date: 20061208
  Serious: Yes (Other)
  Sender: FDA-Public Use
  Company Number: 2006AP02846

PATIENT
  Age: 42 Year
  Sex: Female
  Weight: 58 kg

DRUGS (4)
  1. MARCAINE [Suspect]
     Indication: HYSTERECTOMY
     Route: 037
     Dates: start: 20060605, end: 20060605
  2. MARCAINE [Suspect]
     Indication: APPENDICECTOMY
     Route: 037
     Dates: start: 20060605, end: 20060605
  3. MARCAINE [Suspect]
     Indication: CAESAREAN SECTION
     Route: 037
     Dates: start: 20060605, end: 20060605
  4. MORPHINE [Concomitant]
     Indication: ANALGESIC EFFECT
     Route: 042
     Dates: start: 20060605, end: 20060605

REACTIONS (5)
  - BRADYARRHYTHMIA [None]
  - DRUG EXPOSURE DURING PREGNANCY [None]
  - EXTRASYSTOLES [None]
  - HYPOTENSION [None]
  - PROCEDURAL COMPLICATION [None]
